FAERS Safety Report 9366813 (Version 1)
Quarter: 2013Q2

REPORT INFORMATION
  Report Type: Spontaneous
  Country: BR (occurrence: BR)
  Receive Date: 20130625
  Receipt Date: 20130625
  Transmission Date: 20140414
  Serious: Yes (Hospitalization)
  Sender: FDA-Public Use
  Company Number: BR-ASTRAZENECA-2013SE46931

PATIENT
  Age: 68 Year
  Sex: Male
  Weight: 90 kg

DRUGS (5)
  1. ATACAND HCT [Suspect]
     Indication: HYPERTENSION
     Dosage: 16/12.5 MG, TWO TIMES A DAY
     Route: 048
     Dates: start: 2008
  2. SELOZOK [Suspect]
     Indication: CORONARY ARTERY OCCLUSION
     Dosage: DAILY
     Route: 048
     Dates: start: 2008
  3. CLOPINE [Suspect]
     Indication: CORONARY ARTERY OCCLUSION
     Route: 065
     Dates: start: 2012
  4. SOMALGIN [Suspect]
     Indication: CORONARY ARTERY OCCLUSION
     Route: 065
     Dates: start: 2008
  5. CARDIZEM [Concomitant]

REACTIONS (2)
  - Gastric haemorrhage [Recovering/Resolving]
  - Off label use [Not Recovered/Not Resolved]
